FAERS Safety Report 23633066 (Version 2)
Quarter: 2024Q2

REPORT INFORMATION
  Report Type: Spontaneous
  Country: US (occurrence: US)
  Receive Date: 20240314
  Receipt Date: 20240613
  Transmission Date: 20240715
  Serious: No
  Sender: FDA-Public Use
  Company Number: US-BRISTOL-MYERS SQUIBB COMPANY-2024-041408

PATIENT
  Sex: Male
  Weight: 72.57 kg

DRUGS (1)
  1. OPDIVO [Suspect]
     Active Substance: NIVOLUMAB
     Indication: Bladder cancer
     Dates: start: 2024

REACTIONS (3)
  - Arthralgia [Unknown]
  - Myalgia [Unknown]
  - Herpes virus infection [Unknown]
